FAERS Safety Report 6135790-3 (Version None)
Quarter: 2009Q1

REPORT INFORMATION
  Report Type: 
  Country: None (occurrence: None)
  Receive Date: 20090327
  Receipt Date: 20090327
  Transmission Date: 20090719
  Serious: Yes (Death, Hospitalization)
  Sender: FDA-Public Use
  Company Number: US-ROXANE LABORATORIES, INC.-2009-RO-00299RO

PATIENT
  Sex: Female

DRUGS (1)
  1. DEXAMETHASONE [Suspect]
     Indication: DECREASED APPETITE
     Dosage: 10MG
     Dates: start: 20080804, end: 20080829

REACTIONS (12)
  - ABDOMINAL DISTENSION [None]
  - CARBON DIOXIDE ABNORMAL [None]
  - FEELING OF DESPAIR [None]
  - FLUID RETENTION [None]
  - GASTROINTESTINAL HAEMORRHAGE [None]
  - HEPATIC CIRRHOSIS [None]
  - LIVER DISORDER [None]
  - MENTAL DISORDER [None]
  - OEDEMA PERIPHERAL [None]
  - PANIC ATTACK [None]
  - PNEUMONIA [None]
  - URINARY TRACT INFECTION [None]
